FAERS Safety Report 7166704-5 (Version None)
Quarter: 2010Q4

REPORT INFORMATION
  Report Type: 
  Country: None (occurrence: None)
  Receive Date: 20101216
  Receipt Date: 20101208
  Transmission Date: 20110411
  Serious: Yes (Hospitalization)
  Sender: FDA-Public Use
  Company Number: JP-ROCHE-716772

PATIENT
  Sex: Male
  Weight: 52.8 kg

DRUGS (19)
  1. TOCILIZUMAB [Suspect]
     Indication: RHEUMATOID ARTHRITIS
     Route: 065
     Dates: start: 20100120
  2. OCRELIZUMAB [Suspect]
     Indication: RHEUMATOID ARTHRITIS
     Dosage: FORM: INFUSION; FORM AND FREQUENCY PER PROTOCOL; LAST DOSE PRIOR TO SAE: 19 AUGUST 2009; DAY 1
     Route: 042
     Dates: start: 20090218, end: 20090218
  3. OCRELIZUMAB [Suspect]
     Dosage: DAY 15, SECOND ADMINISTRATION
     Route: 042
     Dates: start: 20090304, end: 20090304
  4. OCRELIZUMAB [Suspect]
     Dosage: WEEK 24, THIRD ADMINISTRATION
     Route: 042
     Dates: start: 20090806, end: 20090806
  5. OCRELIZUMAB [Suspect]
     Dosage: WEEK 24, FOURTH ADMINISTRATION
     Route: 042
     Dates: start: 20090819
  6. METHOTREXATE [Concomitant]
     Dates: start: 20050304
  7. FOLIC ACID [Concomitant]
     Dates: start: 20030906
  8. MISOPROSTOL [Concomitant]
     Dates: start: 20030904
  9. TEPRENONE [Concomitant]
     Dates: start: 20060602
  10. MELOXICAM [Concomitant]
     Dates: start: 20081219
  11. ALLOPURINOL [Concomitant]
     Dates: start: 20040318
  12. PREDNISOLONE [Concomitant]
  13. AMLODIPINE BESYLATE [Concomitant]
     Dosage: DRUG REPORTED AS AMLODIPINE BESILATE
     Dates: start: 20040820
  14. LOSARTAN POTASSIUM [Concomitant]
     Dates: start: 20041217
  15. LANSOPRAZOLE [Concomitant]
     Dates: start: 20081219
  16. ATORVASTATIN CALCIUM [Concomitant]
     Dates: start: 20080402
  17. ZOPICLONE [Concomitant]
     Dates: start: 20080402
  18. INFLIXIMAB [Concomitant]
     Dates: start: 20030901, end: 20040201
  19. INFLIXIMAB [Concomitant]
     Dates: start: 20101117

REACTIONS (1)
  - HYDROCELE [None]
